FAERS Safety Report 8514996-X (Version None)
Quarter: 2012Q3

REPORT INFORMATION
  Report Type: 
  Country: None (occurrence: None)
  Receive Date: 20120717
  Receipt Date: 20120614
  Transmission Date: 20120928
  Serious: Yes (Other)
  Sender: FDA-Public Use
  Company Number: FI-ROCHE-1086499

PATIENT

DRUGS (1)
  1. BEVACIZUMAB [Suspect]
     Indication: RENAL CANCER
     Dosage: CYCLICAL
     Dates: start: 20101006, end: 20110427

REACTIONS (2)
  - DISEASE PROGRESSION [None]
  - RENAL CANCER [None]
